FAERS Safety Report 8312871-7 (Version None)
Quarter: 2012Q2

REPORT INFORMATION
  Report Type: 
  Country: None (occurrence: None)
  Receive Date: 20120426
  Receipt Date: 20120423
  Transmission Date: 20120825
  Serious: No
  Sender: FDA-Public Use
  Company Number: US-PFIZER INC-2012100942

PATIENT
  Sex: Female
  Weight: 57 kg

DRUGS (5)
  1. TYLENOL PM [Suspect]
     Indication: SLEEP DISORDER
     Dosage: UNK
  2. ADVIL PM [Suspect]
     Indication: SLEEP DISORDER
     Dosage: HALF OF 200 MG
     Route: 048
  3. TRAZODONE HCL [Suspect]
     Indication: SLEEP DISORDER
     Dosage: 50 MG, UNK
  4. ATORVASTATIN CALCIUM [Suspect]
     Indication: BLOOD CHOLESTEROL INCREASED
     Dosage: 10 MG, DAILY
     Dates: start: 20111101
  5. MELATONIN [Suspect]
     Indication: SLEEP DISORDER
     Dosage: 5 MG, DAILY

REACTIONS (6)
  - DRUG INEFFECTIVE [None]
  - CONSTIPATION [None]
  - GASTROOESOPHAGEAL REFLUX DISEASE [None]
  - BREATH ODOUR [None]
  - ERUCTATION [None]
  - DYSGEUSIA [None]
